FAERS Safety Report 6526923-5 (Version None)
Quarter: 2009Q4

REPORT INFORMATION
  Report Type: 
  Country: None (occurrence: None)
  Receive Date: 20091229
  Receipt Date: 20091216
  Transmission Date: 20100525
  Serious: Yes (Hospitalization)
  Sender: FDA-Public Use
  Company Number: 92619

PATIENT
  Age: 26 Year
  Sex: Male

DRUGS (1)
  1. KETAMINE HCL [Suspect]
     Dosage: UNK

REACTIONS (4)
  - CYSTITIS [None]
  - DRUG ABUSE [None]
  - DRUG DEPENDENCE [None]
  - MEDICATION ERROR [None]
